FAERS Safety Report 8929200 (Version 1)
Quarter: 2012Q4

REPORT INFORMATION
  Report Type: 
  Country: GB (occurrence: GB)
  Receive Date: 20121127
  Receipt Date: 20121127
  Transmission Date: 20130627
  Serious: Yes (Other)
  Sender: FDA-Public Use
  Company Number: PHHY2012GB106527

PATIENT
  Sex: Male

DRUGS (2)
  1. METFORMIN [Suspect]
     Indication: TYPE 2 DIABETES MELLITUS
     Route: 065
  2. LANTUS [Suspect]
     Indication: TYPE 2 DIABETES MELLITUS
     Dosage: 12 Units
     Route: 065

REACTIONS (1)
  - Dyspnoea [Not Recovered/Not Resolved]
